FAERS Safety Report 9309880 (Version 1)
Quarter: 2013Q2

REPORT INFORMATION
  Report Type: Spontaneous
  Country: US (occurrence: US)
  Receive Date: 20130526
  Receipt Date: 20130526
  Transmission Date: 20140414
  Serious: Yes (Hospitalization)
  Sender: FDA-Public Use
  Company Number: US-B.I. PHARMACEUTICALS,INC./RIDGEFIELD-2013-BI-14156BP

PATIENT
  Age: 74 Year
  Sex: Male
  Weight: 72 kg

DRUGS (5)
  1. FLOMAX CAPSULES [Suspect]
     Indication: BENIGN PROSTATIC HYPERPLASIA
     Dosage: 0.4 MG
     Route: 048
     Dates: start: 2010
  2. CLOPIDOGREL [Concomitant]
     Indication: BLOOD VISCOSITY INCREASED
     Dosage: 75 MG
     Route: 048
     Dates: start: 2008
  3. CRESTOR [Concomitant]
     Indication: BLOOD CHOLESTEROL INCREASED
     Dosage: 5 MG
     Route: 048
  4. ATENOLOL/CHLORTHAL [Concomitant]
     Indication: HYPERTENSION
     Dosage: STRENGTH: 50MG/25MG; DAILY DOSE: 50MG/
     Route: 048
     Dates: start: 1988
  5. IBUPROFEN [Concomitant]
     Route: 048

REACTIONS (4)
  - Prostate cancer [Recovered/Resolved]
  - Coronary artery disease [Not Recovered/Not Resolved]
  - Polyuria [Not Recovered/Not Resolved]
  - Nightmare [Not Recovered/Not Resolved]
